FAERS Safety Report 18570388 (Version 1)
Quarter: 2020Q4

REPORT INFORMATION
  Report Type: Report from Study
  Country: PL (occurrence: PL)
  Receive Date: 20201202
  Receipt Date: 20201202
  Transmission Date: 20210114
  Serious: Yes (Hospitalization)
  Sender: FDA-Public Use
  Company Number: PL-GW PHARMA-201905PLGW1376

PATIENT

DRUGS (10)
  1. HITAXA [Concomitant]
     Indication: HYPERSENSITIVITY
     Dosage: 1 TABLET, QD
     Route: 048
     Dates: start: 20180401
  2. DEPAKINE CHRONO [Concomitant]
     Active Substance: VALPROATE SODIUM
     Dosage: 300 MILLIGRAM, BID
     Route: 048
     Dates: start: 20190408
  3. EPIDIOLEX [Suspect]
     Active Substance: CANNABIDIOL
     Dosage: 47MG/KG, 850 MILLIGRAM, BID
     Route: 048
     Dates: start: 20190330, end: 20190404
  4. LACOSAMIDE. [Concomitant]
     Active Substance: LACOSAMIDE
     Dosage: 50 MILLIGRAM, BID
     Route: 048
     Dates: start: 20190325
  5. EPIDIOLEX [Suspect]
     Active Substance: CANNABIDIOL
     Indication: TUBEROUS SCLEROSIS COMPLEX
     Dosage: 50MG/KG, 950 MILLIGRAM, BID
     Route: 048
     Dates: start: 20180412, end: 20190330
  6. LACOSAMIDE. [Concomitant]
     Active Substance: LACOSAMIDE
     Indication: PRODUCT USED FOR UNKNOWN INDICATION
     Dosage: 50 MILLIGRAM, BID
     Route: 048
     Dates: start: 20190319, end: 20190324
  7. DEPAKINE CHRONO [Concomitant]
     Active Substance: VALPROATE SODIUM
     Indication: PRODUCT USED FOR UNKNOWN INDICATION
     Dosage: 600 MILLIGRAM, BID
     Route: 048
     Dates: start: 201612, end: 20190405
  8. EPIDIOLEX [Suspect]
     Active Substance: CANNABIDIOL
     Dosage: 41MG/KG, 750 MILLIGRAM, BID
     Route: 048
     Dates: start: 20190404
  9. DEPAKINE CHRONO [Concomitant]
     Active Substance: VALPROATE SODIUM
     Dosage: 800 MILLIGRAM, QD (300MG AM, 500MG PM)
     Route: 048
     Dates: start: 20190405, end: 20190408
  10. LAMITRIN [Concomitant]
     Active Substance: LAMOTRIGINE
     Indication: PRODUCT USED FOR UNKNOWN INDICATION
     Dosage: 175 MILLIGRAM, QD
     Route: 048
     Dates: start: 2015

REACTIONS (1)
  - Vomiting [Recovered/Resolved]

NARRATIVE: CASE EVENT DATE: 20190215
